FAERS Safety Report 17874124 (Version 1)
Quarter: 2020Q2

REPORT INFORMATION
  Report Type: Spontaneous
  Country: US (occurrence: US)
  Receive Date: 20200609
  Receipt Date: 20200609
  Transmission Date: 20200714
  Serious: No
  Sender: FDA-Public Use
  Company Number: US-AUROBINDO-AUR-APL-2019-074913

PATIENT
  Age: 69 Year
  Sex: Female
  Weight: 135 kg

DRUGS (3)
  1. CALCIUM [Concomitant]
     Active Substance: CALCIUM
     Indication: PRODUCT USED FOR UNKNOWN INDICATION
     Dosage: UNK
     Route: 065
  2. VITAMINS NOS [Concomitant]
     Active Substance: VITAMINS
     Indication: PRODUCT USED FOR UNKNOWN INDICATION
     Dosage: UNK
     Route: 065
  3. VENLAFAXINE HYDROCHLORIDE EXTENDED-RELEASE CAPSULES 37.5MG [Suspect]
     Active Substance: VENLAFAXINE HYDROCHLORIDE
     Indication: ANXIETY
     Dosage: 1 DOSAGE FORM, ONCE A DAY (SINCE 2001 OR 2002)
     Route: 065
     Dates: start: 2001

REACTIONS (8)
  - Disorientation [Not Recovered/Not Resolved]
  - Confusional state [Not Recovered/Not Resolved]
  - Dizziness [Not Recovered/Not Resolved]
  - Visual impairment [Unknown]
  - Intentional product use issue [Not Recovered/Not Resolved]
  - Wrong technique in product usage process [Unknown]
  - Tinnitus [Not Recovered/Not Resolved]
  - Product dose omission [Not Recovered/Not Resolved]
